FAERS Safety Report 8707999 (Version 2)
Quarter: 2012Q4

REPORT INFORMATION
  Report Type: Spontaneous
  Country: JP (occurrence: None)
  Receive Date: 20120719
  Receipt Date: 20120815
  Transmission Date: 20130627
  Serious: Yes (Hospitalization, Other)
  Sender: FDA-Public Use
  Company Number: AE-SPE-2012-002

PATIENT
  Age: 64 Year
  Sex: Female

DRUGS (4)
  1. CEFDITOREN PIVOXIL [Suspect]
     Indication: BRONCHITIS
     Dosage: 300 MG, P. O.
     Route: 048
     Dates: start: 20100316, end: 20100316
  2. LOXOPROFEN SODIUM [Suspect]
     Indication: BRONCHITIS
     Dosage: 180 MG P. O.
     Route: 048
     Dates: start: 20100316, end: 20100316
  3. ASVERIN (TIPEPIDINE HIBENZATE) [Suspect]
     Indication: BRONCHITIS
     Dosage: 60 MG, P. O.
     Route: 048
     Dates: start: 20100316
  4. POLARAMINE [Suspect]
     Indication: BRONCHITIS
     Dosage: 12 MG P.O.
     Route: 048
     Dates: start: 20100316

REACTIONS (5)
  - Anaphylactic shock [None]
  - Self-medication [None]
  - White blood cell count increased [None]
  - Haemoglobin increased [None]
  - Hypovolaemia [None]
